FAERS Safety Report 9733733 (Version 1)
Quarter: 2013Q4

REPORT INFORMATION
  Report Type: Spontaneous
  Country: IT (occurrence: IT)
  Receive Date: 20131205
  Receipt Date: 20131205
  Transmission Date: 20140711
  Serious: Yes (Hospitalization)
  Sender: FDA-Public Use
  Company Number: IT-PFIZER INC-2013345501

PATIENT
  Age: 58 Year
  Sex: Male

DRUGS (2)
  1. TOTALIP [Suspect]
     Indication: HYPERCHOLESTEROLAEMIA
     Dosage: 10 MG, DAILY
     Route: 030
     Dates: start: 20130202, end: 20130919
  2. METFORAL [Concomitant]
     Dosage: 1700 MG, UNK
     Route: 048

REACTIONS (1)
  - Diplopia [Unknown]
